FAERS Safety Report 13568781 (Version 1)
Quarter: 2017Q2

REPORT INFORMATION
  Report Type: Spontaneous
  Country: US (occurrence: US)
  Receive Date: 20170522
  Receipt Date: 20170522
  Transmission Date: 20170830
  Serious: No
  Sender: FDA-Public Use
  Company Number: US-NEOS THERAPEUTICS, LP-2017NEO00025

PATIENT
  Sex: Male
  Weight: 70.3 kg

DRUGS (2)
  1. ADZENYS XR-ODT [Suspect]
     Active Substance: AMPHETAMINE
     Indication: ATTENTION DEFICIT/HYPERACTIVITY DISORDER
     Dosage: 1 TABLETS, 1X/DAY
     Route: 048
     Dates: start: 2016
  2. MULTIVITAMIN [Concomitant]
     Active Substance: VITAMINS

REACTIONS (2)
  - Intentional product misuse [Unknown]
  - Drug ineffective [Recovered/Resolved]
